FAERS Safety Report 8805284 (Version 1)
Quarter: 2012Q4

REPORT INFORMATION
  Report Type: 
  Country: GB (occurrence: GB)
  Receive Date: 20120924
  Receipt Date: 20120924
  Transmission Date: 20130627
  Serious: Yes (Hospitalization)
  Sender: FDA-Public Use
  Company Number: PHHY2012GB081470

PATIENT
  Age: 67 Year
  Sex: Female
  Weight: 100 kg

DRUGS (8)
  1. METHOTREXATE [Suspect]
     Indication: RHEUMATOID ARTHRITIS
     Dosage: 15 mg, QW
     Route: 048
     Dates: start: 20120703, end: 20120901
  2. ALENDRONATE SODIUM [Concomitant]
  3. FOLIC ACID [Concomitant]
  4. FUROSEMIDE [Concomitant]
  5. LISINOPRIL [Concomitant]
  6. OMEPRAZOLE [Concomitant]
  7. PARACETAMOL [Concomitant]
  8. PREDNISOLONE [Concomitant]

REACTIONS (10)
  - C-reactive protein increased [Unknown]
  - Pneumonitis [Recovering/Resolving]
  - Rales [Unknown]
  - Sputum discoloured [Unknown]
  - Non-cardiac chest pain [Unknown]
  - Dyspnoea [Unknown]
  - Diarrhoea [Unknown]
  - Cough [Unknown]
  - Malaise [Unknown]
  - Productive cough [Unknown]
